FAERS Safety Report 13652331 (Version 1)
Quarter: 2017Q2

REPORT INFORMATION
  Report Type: Spontaneous
  Country: ES (occurrence: ES)
  Receive Date: 20170614
  Receipt Date: 20170614
  Transmission Date: 20170830
  Serious: Yes (Life-Threatening, Other)
  Sender: FDA-Public Use
  Company Number: ES-TEVA-777388ISR

PATIENT
  Age: 71 Year
  Sex: Female

DRUGS (5)
  1. GABAPENTINA [Suspect]
     Active Substance: GABAPENTIN
     Indication: PAIN
     Dosage: 300-300-300
     Route: 048
     Dates: end: 2012
  2. AMITRIPTILINA [Concomitant]
     Active Substance: AMITRIPTYLINE HYDROCHLORIDE
     Indication: PAIN
  3. GABAPENTINA [Suspect]
     Active Substance: GABAPENTIN
     Dosage: 600-600-600
     Route: 048
     Dates: start: 2012, end: 201305
  4. GABAPENTINA [Suspect]
     Active Substance: GABAPENTIN
     Dosage: 800-800-800
     Route: 048
     Dates: start: 201305
  5. PARACETAMOL [Concomitant]
     Active Substance: ACETAMINOPHEN
     Indication: PAIN

REACTIONS (9)
  - Pain [Unknown]
  - Overdose [Unknown]
  - Depression [Unknown]
  - Suicidal ideation [Unknown]
  - Neurodegenerative disorder [Unknown]
  - Adjustment disorder [Unknown]
  - Anxiety disorder due to a general medical condition [Unknown]
  - Somnolence [Unknown]
  - Depressed mood [Recovering/Resolving]

NARRATIVE: CASE EVENT DATE: 2012
